FAERS Safety Report 6730903-4 (Version None)
Quarter: 2010Q2

REPORT INFORMATION
  Report Type: 
  Country: None (occurrence: None)
  Receive Date: 20100518
  Receipt Date: 20100506
  Transmission Date: 20101027
  Serious: Yes (Hospitalization)
  Sender: FDA-Public Use
  Company Number: PHHY2010US29923

PATIENT
  Sex: Male

DRUGS (6)
  1. GLEEVEC [Suspect]
     Indication: CHRONIC MYELOID LEUKAEMIA
     Dosage: 600  MG DAILY
     Route: 048
     Dates: start: 20090128, end: 20100126
  2. LANTUS [Concomitant]
  3. EFFEXOR [Concomitant]
  4. LEVOTHYROXINE SODIUM [Concomitant]
  5. JANUMET [Concomitant]
  6. LISINOPRIL [Concomitant]

REACTIONS (1)
  - OXYGEN SATURATION DECREASED [None]
